FAERS Safety Report 4503365-5 (Version None)
Quarter: 2004Q4

REPORT INFORMATION
  Report Type: 
  Country: None (occurrence: None)
  Receive Date: 20041112
  Receipt Date: 20041029
  Transmission Date: 20050328
  Serious: Yes (Other)
  Sender: FDA-Public Use
  Company Number: 2004-0007675

PATIENT
  Age: 35 Year
  Sex: Male

DRUGS (3)
  1. EMTRICITABINE (EMTRICITABINE) (TABLET) [Suspect]
     Indication: HIV INFECTION
     Dosage: 200 MG, 1 IN 1 D, ORAL
     Route: 048
     Dates: start: 20001014, end: 20040701
  2. TENOFOVIR DISOPROXIL FUMARATE (TENOFOVIR DISOPROXIL FUMARATE) [Suspect]
     Indication: HIV INFECTION
     Dosage: 300 MG, 1 IN 1 D, ORAL
     Route: 048
     Dates: start: 20030528, end: 20040701
  3. NEVIRAPINE (NEVIRAPINE) [Suspect]
     Indication: HIV INFECTION
     Dosage: 1 IN 1 D
     Dates: start: 20030528, end: 20040701

REACTIONS (4)
  - ALANINE AMINOTRANSFERASE INCREASED [None]
  - ASPARTATE AMINOTRANSFERASE INCREASED [None]
  - GAMMA-GLUTAMYLTRANSFERASE INCREASED [None]
  - NEPHROLITHIASIS [None]
